FAERS Safety Report 24131872 (Version 1)
Quarter: 2024Q3

REPORT INFORMATION
  Report Type: Spontaneous
  Country: US (occurrence: None)
  Receive Date: 20240724
  Receipt Date: 20240724
  Transmission Date: 20241016
  Serious: Yes (Hospitalization)
  Sender: Public
  Company Number: None

PATIENT
  Age: 69 Year
  Sex: Male
  Weight: 81.2 kg

DRUGS (1)
  1. CISPLATIN [Suspect]
     Active Substance: CISPLATIN
     Dates: end: 20240708

REACTIONS (9)
  - Odynophagia [None]
  - Haemoptysis [None]
  - Hypophagia [None]
  - Pain [None]
  - Candida infection [None]
  - Epiglottic oedema [None]
  - White blood cell count decreased [None]
  - Infected neoplasm [None]
  - Atelectasis [None]

NARRATIVE: CASE EVENT DATE: 20240721
